FAERS Safety Report 10186638 (Version 2)
Quarter: 2014Q2

REPORT INFORMATION
  Report Type: Spontaneous
  Country: US (occurrence: US)
  Receive Date: 20140521
  Receipt Date: 20140529
  Transmission Date: 20141212
  Serious: Yes (Death, Other)
  Sender: FDA-Public Use
  Company Number: US-BAXTER-2014BAX025679

PATIENT
  Sex: Male

DRUGS (3)
  1. FEIBA [Suspect]
     Indication: HAEMOPHILIA
     Route: 065
     Dates: start: 20101102
  2. FEIBA [Suspect]
     Indication: INHIBITING ANTIBODIES
  3. NOVOSEVEN [Suspect]
     Indication: PRODUCT USED FOR UNKNOWN INDICATION
     Dates: start: 201404

REACTIONS (3)
  - Death [Fatal]
  - Inhibiting antibodies [Unknown]
  - Haemorrhage [Unknown]
